FAERS Safety Report 14120266 (Version 1)
Quarter: 2017Q4

REPORT INFORMATION
  Report Type: Spontaneous
  Country: US (occurrence: US)
  Receive Date: 20171024
  Receipt Date: 20171024
  Transmission Date: 20180321
  Serious: Yes (Hospitalization, Other)
  Sender: FDA-Public Use
  Company Number: US-PRESTIGE BRANDS -2031275

PATIENT
  Age: 55 Year
  Sex: Female

DRUGS (5)
  1. CETIRIZINE HCL [Concomitant]
     Active Substance: CETIRIZINE HYDROCHLORIDE
  2. PANTOPRAZOLE SODIUM. [Concomitant]
     Active Substance: PANTOPRAZOLE SODIUM
  3. DEBROX [Suspect]
     Active Substance: CARBAMIDE PEROXIDE
     Indication: CERUMEN REMOVAL
     Route: 001
     Dates: start: 20170124, end: 20170126
  4. CENTRUM [Concomitant]
     Active Substance: VITAMINS
  5. VITAMIN D [Concomitant]
     Active Substance: CHOLECALCIFEROL

REACTIONS (11)
  - Headache [Recovered/Resolved]
  - Dizziness [Not Recovered/Not Resolved]
  - Nausea [Recovered/Resolved]
  - Vertigo [Recovered/Resolved]
  - Vomiting [Recovered/Resolved]
  - Hypertension [Recovered/Resolved]
  - Ear discomfort [Recovered/Resolved]
  - Depression [Recovered/Resolved]
  - Deafness neurosensory [Not Recovered/Not Resolved]
  - Tinnitus [Not Recovered/Not Resolved]
  - Inner ear inflammation [Recovered/Resolved]
